FAERS Safety Report 4597940-X (Version None)
Quarter: 2005Q1

REPORT INFORMATION
  Report Type: 
  Country: None (occurrence: None)
  Receive Date: 20050301
  Receipt Date: 20050222
  Transmission Date: 20050727
  Serious: Yes (Other)
  Sender: FDA-Public Use
  Company Number: 212454

PATIENT
  Age: 24 Year
  Sex: Female

DRUGS (5)
  1. XOLAIR (OMALIZUMAB) PWDR + SOLVENT,INFECTION SOLN, 150MG [Suspect]
     Indication: ASTHMA
     Dosage: 300 MG , Q2W , SUBCUTANEOUS
     Route: 058
     Dates: start: 20050124, end: 20050208
  2. ZYRTEC [Concomitant]
  3. ADVAIR (FLUTICASONE PROPIONATE, SALMETEROL XINAFOATE) [Concomitant]
  4. SINGULAIR [Concomitant]
  5. ALBUTEROL INHALER (ALBUTEROL, ALBUTEROL SULFATE) [Concomitant]

REACTIONS (4)
  - ANAPHYLACTIC REACTION [None]
  - ASTHMA [None]
  - CONDITION AGGRAVATED [None]
  - UPPER RESPIRATORY TRACT INFECTION [None]
